FAERS Safety Report 4582073-9 (Version None)
Quarter: 2005Q1

REPORT INFORMATION
  Report Type: 
  Country: None (occurrence: None)
  Receive Date: 20050214
  Receipt Date: 20040707
  Transmission Date: 20050727
  Serious: Yes (Hospitalization)
  Sender: FDA-Public Use
  Company Number: JP-MERCK-0407USA00819

PATIENT
  Age: 43 Day
  Sex: Male
  Weight: 1 kg

DRUGS (7)
  1. INDOCIN I.V. [Suspect]
     Indication: PATENT DUCTUS ARTERIOSUS
     Route: 042
     Dates: start: 20031217, end: 20040126
  2. DOPRAM [Concomitant]
     Indication: APNOEIC ATTACK
     Route: 042
  3. LASIX [Concomitant]
     Indication: CARDIAC FAILURE
     Route: 048
     Dates: start: 20031227, end: 20040126
  4. SODIUM CHLORIDE [Concomitant]
     Indication: HYPONATRAEMIA
     Route: 065
     Dates: start: 20031228, end: 20040126
  5. THEO-DUR [Concomitant]
     Indication: APNOEIC ATTACK
     Route: 065
     Dates: start: 20031228, end: 20040126
  6. ALFAROL [Concomitant]
     Indication: RICKETS
     Route: 065
     Dates: start: 20031230, end: 20040126
  7. EPOETIN ALFA [Concomitant]
     Indication: ANAEMIA NEONATAL
     Route: 058
     Dates: start: 20031230, end: 20040126

REACTIONS (4)
  - CARDIOMEGALY [None]
  - COARCTATION OF THE AORTA [None]
  - HYPERTROPHIC CARDIOMYOPATHY [None]
  - INCREASED VENTRICULAR AFTERLOAD [None]
